FAERS Safety Report 19007554 (Version 1)
Quarter: 2021Q1

REPORT INFORMATION
  Report Type: Spontaneous
  Country: GB (occurrence: GB)
  Receive Date: 20210315
  Receipt Date: 20210315
  Transmission Date: 20210420
  Serious: Yes (Congenital Anomaly, Other)
  Sender: FDA-Public Use
  Company Number: GB-CURIUM-2021000091

PATIENT
  Age: 6 Day
  Sex: Male

DRUGS (2)
  1. THYROXINE [Concomitant]
     Active Substance: LEVOTHYROXINE
     Indication: THYROXINE THERAPY
     Dosage: UNKNOWN, DURING THE THIRD TRIMESTER
     Route: 064
     Dates: start: 1983, end: 1983
  2. SODIUM IODIDE I 131 [Suspect]
     Active Substance: SODIUM IODIDE I-131
     Indication: HYPERTHYROIDISM
     Route: 064
     Dates: start: 198211, end: 198211

REACTIONS (3)
  - Foetal growth restriction [Unknown]
  - Neonatal thyrotoxicosis [Recovered/Resolved]
  - Foetal exposure during pregnancy [Recovered/Resolved]
